FAERS Safety Report 16485036 (Version 1)
Quarter: 2019Q2

REPORT INFORMATION
  Report Type: Spontaneous
  Country: AT (occurrence: AT)
  Receive Date: 20190627
  Receipt Date: 20190627
  Transmission Date: 20190711
  Serious: Yes (Hospitalization)
  Sender: FDA-Public Use
  Company Number: AT-OTSUKA-2019_023976

PATIENT
  Sex: Male
  Weight: 100 kg

DRUGS (4)
  1. ABILIFY MAINTENA [Suspect]
     Active Substance: ARIPIPRAZOLE
     Indication: DRUG ABUSE
     Dosage: 400 MG, UNK
     Route: 030
     Dates: start: 20180329
  2. ABILIFY MAINTENA [Suspect]
     Active Substance: ARIPIPRAZOLE
     Indication: ALCOHOL ABUSE
     Dosage: 550 MG, (1X400MG AND HALF 300MG)
     Route: 030
     Dates: start: 201806
  3. ABILIFY [Suspect]
     Active Substance: ARIPIPRAZOLE
     Indication: PRODUCT USED FOR UNKNOWN INDICATION
     Dosage: 5 MG, UNK
     Route: 048
     Dates: start: 201806
  4. DEPAKINE [Suspect]
     Active Substance: VALPROATE SODIUM
     Indication: ANAMNESTIC REACTION
     Dosage: 1500 MG, QD
     Route: 065

REACTIONS (6)
  - Anamnestic reaction [Unknown]
  - Overdose [Unknown]
  - Antipsychotic drug level decreased [Not Recovered/Not Resolved]
  - Biliary tract disorder [Unknown]
  - Product use in unapproved indication [Unknown]
  - Dysphagia [Unknown]

NARRATIVE: CASE EVENT DATE: 20180409
